FAERS Safety Report 17077693 (Version 1)
Quarter: 2019Q4

REPORT INFORMATION
  Report Type: Report from Study
  Country: CA (occurrence: CA)
  Receive Date: 20191126
  Receipt Date: 20191126
  Transmission Date: 20200122
  Serious: Yes (Death, Hospitalization, Other)
  Sender: FDA-Public Use
  Company Number: CA-TEVA-2019-CA-1141094

PATIENT
  Age: 48 Year
  Sex: Male

DRUGS (21)
  1. FENTANYL. [Suspect]
     Active Substance: FENTANYL
     Indication: PRODUCT USED FOR UNKNOWN INDICATION
     Route: 065
  2. SANDOSTATIN [Suspect]
     Active Substance: OCTREOTIDE ACETATE
     Dosage: 1.3333 MILLIGRAM DAILY;
     Route: 058
  3. SANDOSTATIN [Suspect]
     Active Substance: OCTREOTIDE ACETATE
     Dosage: 1 MILLIGRAM DAILY;
     Route: 030
  4. SANDOSTATIN [Suspect]
     Active Substance: OCTREOTIDE ACETATE
     Dosage: 1.3333 MILLIGRAM DAILY;
     Route: 030
  5. SANDOSTATIN [Suspect]
     Active Substance: OCTREOTIDE ACETATE
     Dosage: 1 MILLIGRAM DAILY;
     Route: 058
  6. TYLENOL [Concomitant]
     Active Substance: ACETAMINOPHEN
     Indication: PRODUCT USED FOR UNKNOWN INDICATION
     Route: 065
  7. SANDOSTATIN [Suspect]
     Active Substance: OCTREOTIDE ACETATE
     Dosage: 1.3333 MILLIGRAM DAILY;
     Route: 030
  8. SANDOSTATIN [Suspect]
     Active Substance: OCTREOTIDE ACETATE
     Dosage: 1 MILLIGRAM DAILY;
     Route: 058
  9. SANDOSTATIN [Suspect]
     Active Substance: OCTREOTIDE ACETATE
     Dosage: 1.3333 MILLIGRAM DAILY;
     Route: 030
  10. SANDOSTATIN [Suspect]
     Active Substance: OCTREOTIDE ACETATE
     Dosage: 1.3333 MILLIGRAM DAILY;
     Route: 058
  11. SUTENT [Concomitant]
     Active Substance: SUNITINIB MALATE
     Indication: DEVICE RELATED INFECTION
     Route: 065
  12. DIABINESE [Concomitant]
     Active Substance: CHLORPROPAMIDE
     Indication: PRODUCT USED FOR UNKNOWN INDICATION
     Dosage: 1000 MILLIGRAM DAILY;
     Route: 065
  13. SANDOSTATIN [Suspect]
     Active Substance: OCTREOTIDE ACETATE
     Dosage: 1.3333 MILLIGRAM DAILY;
     Route: 058
  14. SANDOSTATIN [Suspect]
     Active Substance: OCTREOTIDE ACETATE
     Route: 058
  15. COVERSYL//PERINDOPRILARGININE [Concomitant]
     Indication: PRODUCT USED FOR UNKNOWN INDICATION
     Route: 065
  16. SANDOSTATIN [Suspect]
     Active Substance: OCTREOTIDE ACETATE
     Dosage: 1.3333 MILLIGRAM DAILY;
     Route: 030
  17. SANDOSTATIN [Suspect]
     Active Substance: OCTREOTIDE ACETATE
     Dosage: 1.3333 MILLIGRAM DAILY;
     Route: 058
  18. SANDOSTATIN [Suspect]
     Active Substance: OCTREOTIDE ACETATE
     Indication: PANCREATIC NEUROENDOCRINE TUMOUR METASTATIC
     Route: 058
  19. SANDOSTATIN [Suspect]
     Active Substance: OCTREOTIDE ACETATE
     Dosage: 1.3333 MILLIGRAM DAILY;
     Route: 030
  20. AFINITOR [Suspect]
     Active Substance: EVEROLIMUS
     Indication: PANCREATIC NEUROENDOCRINE TUMOUR METASTATIC
     Dosage: 40 MILLIGRAM DAILY;
     Route: 048
  21. SANDOSTATIN [Suspect]
     Active Substance: OCTREOTIDE ACETATE
     Dosage: 1 MILLIGRAM DAILY;
     Route: 030

REACTIONS (22)
  - Fatigue [Fatal]
  - Melaena [Fatal]
  - Rhinorrhoea [Fatal]
  - Sputum discoloured [Fatal]
  - Pain [Fatal]
  - Bile duct obstruction [Fatal]
  - Blood calcium decreased [Fatal]
  - Sciatica [Fatal]
  - Haemoglobin decreased [Fatal]
  - Bile output abnormal [Fatal]
  - Influenza [Fatal]
  - Injection site pain [Fatal]
  - Pyrexia [Fatal]
  - Abdominal pain [Fatal]
  - Decreased appetite [Fatal]
  - Blood pressure increased [Fatal]
  - Cough [Fatal]
  - Device related infection [Fatal]
  - Malaise [Fatal]
  - Oral discomfort [Fatal]
  - Overdose [Fatal]
  - Tongue discomfort [Fatal]
